FAERS Safety Report 5571183-5 (Version None)
Quarter: 2007Q4

REPORT INFORMATION
  Report Type: 
  Country: None (occurrence: None)
  Receive Date: 20071221
  Receipt Date: 20071030
  Transmission Date: 20080405
  Serious: No
  Sender: FDA-Public Use
  Company Number: A0633763A

PATIENT
  Sex: Female

DRUGS (2)
  1. FLONASE [Suspect]
     Dosage: 1SPR AS REQUIRED
     Route: 045
  2. BLOOD PRESSURE MEDICATION [Concomitant]

REACTIONS (2)
  - EYE IRRITATION [None]
  - NASAL DRYNESS [None]
